FAERS Safety Report 20103221 (Version 3)
Quarter: 2022Q1

REPORT INFORMATION
  Report Type: Report from Study
  Country: CO (occurrence: CO)
  Receive Date: 20211123
  Receipt Date: 20220131
  Transmission Date: 20220423
  Serious: Yes (Life-Threatening)
  Sender: FDA-Public Use
  Company Number: CO-NOVARTISPH-NVSC2021CO267672

PATIENT
  Sex: Male
  Weight: 96 kg

DRUGS (1)
  1. COSENTYX [Suspect]
     Active Substance: SECUKINUMAB
     Indication: Ankylosing spondylitis
     Dosage: 150 MG, QMO (STARTED 2 YEARS AGO)
     Route: 058

REACTIONS (2)
  - Pain [Recovering/Resolving]
  - Inappropriate schedule of product administration [Unknown]
